FAERS Safety Report 21935360 (Version 8)
Quarter: 2023Q2

REPORT INFORMATION
  Report Type: Report from Study
  Country: TH (occurrence: None)
  Receive Date: 20230201
  Receipt Date: 20230427
  Transmission Date: 20230721
  Serious: Yes (Hospitalization)
  Sender: FDA-Public Use
  Company Number: TH-Eisai Medical Research-EC-2023-132873

PATIENT
  Age: 60 Year
  Sex: Male
  Weight: 57 kg

DRUGS (4)
  1. LENVATINIB [Suspect]
     Active Substance: LENVATINIB
     Indication: Clear cell renal cell carcinoma
     Dosage: STARTING DOSE: 20 MG, FLUCTUATED DOSAGE
     Route: 048
     Dates: start: 20220517, end: 20220807
  2. LENVATINIB [Suspect]
     Active Substance: LENVATINIB
     Dosage: 14MG FLUCTUATED DOSAGE
     Route: 048
     Dates: start: 20220808
  3. QUAVONLIMAB [Suspect]
     Active Substance: QUAVONLIMAB
     Indication: Clear cell renal cell carcinoma
     Dosage: QUAVONLIMAB (MK-1308) 25MG (+) PEMBROLIZUMAB (MK-3475) 400MG (MK-1308A)
     Route: 042
     Dates: start: 20220517, end: 20220627
  4. PEMBROLIZUMAB [Suspect]
     Active Substance: PEMBROLIZUMAB
     Dosage: QUAVONLIMAB (MK-1308) 25MG (+) PEMBROLIZUMAB (MK-3475) 400MG (MK-1308A)
     Route: 042
     Dates: start: 20220808

REACTIONS (1)
  - Decreased appetite [Recovered/Resolved]

NARRATIVE: CASE EVENT DATE: 20220718
